FAERS Safety Report 8806077 (Version 1)
Quarter: 2012Q4

REPORT INFORMATION
  Report Type: 
  Country: US (occurrence: US)
  Receive Date: 20120925
  Receipt Date: 20120925
  Transmission Date: 20130627
  Serious: No
  Sender: FDA-Public Use
  Company Number: US-BAYER-2012-098731

PATIENT
  Age: 53 Year
  Sex: Female
  Weight: 45.35 kg

DRUGS (1)
  1. ALEVE CAPLET/TABLET,MIDOL EXTENDED RELIEF CAPLET [Suspect]
     Indication: BACK PAIN
     Dosage: UNK
     Route: 048
     Dates: start: 20120915, end: 20120916

REACTIONS (1)
  - Abdominal pain upper [Not Recovered/Not Resolved]
